FAERS Safety Report 10917735 (Version 4)
Quarter: 2015Q3

REPORT INFORMATION
  Report Type: Spontaneous
  Country: US (occurrence: US)
  Receive Date: 20150316
  Receipt Date: 20150715
  Transmission Date: 20151125
  Serious: No
  Sender: FDA-Public Use
  Company Number: US-GLAXOSMITHKLINE-US2015GSK016072

PATIENT
  Age: 73 Year
  Sex: Male

DRUGS (2)
  1. VOTRIENT [Suspect]
     Active Substance: PAZOPANIB HYDROCHLORIDE
     Indication: RENAL CANCER
     Dosage: 800 MG, QD
     Dates: start: 20140731
  2. VOTRIENT [Suspect]
     Active Substance: PAZOPANIB HYDROCHLORIDE
     Dosage: UNK MG, UNK
     Dates: start: 20140731

REACTIONS (3)
  - Vitreous floaters [Unknown]
  - Breast tenderness [Unknown]
  - Breast pain [Unknown]

NARRATIVE: CASE EVENT DATE: 201501
